FAERS Safety Report 17004661 (Version 2)
Quarter: 2019Q4

REPORT INFORMATION
  Report Type: Spontaneous
  Country: GB (occurrence: GB)
  Receive Date: 20191107
  Receipt Date: 20191122
  Transmission Date: 20200122
  Serious: Yes (Hospitalization, Other)
  Sender: FDA-Public Use
  Company Number: GB-ABBVIE-19K-167-2968070-00

PATIENT
  Sex: Male
  Weight: 133.35 kg

DRUGS (2)
  1. HUMIRA [Suspect]
     Active Substance: ADALIMUMAB
     Indication: PRODUCT USED FOR UNKNOWN INDICATION
     Route: 058
     Dates: start: 20170531, end: 2017
  2. HUMIRA [Suspect]
     Active Substance: ADALIMUMAB
     Route: 058
     Dates: start: 2017, end: 201908

REACTIONS (9)
  - Dyspnoea [Recovered/Resolved]
  - Product use in unapproved indication [Unknown]
  - Anxiety [Recovered/Resolved]
  - Palpitations [Recovered/Resolved]
  - Depression [Recovered/Resolved]
  - Adverse drug reaction [Recovering/Resolving]
  - Panic attack [Recovered/Resolved]
  - Suicidal ideation [Unknown]
  - Hypoaesthesia [Recovering/Resolving]

NARRATIVE: CASE EVENT DATE: 2017
